FAERS Safety Report 5532800-9 (Version None)
Quarter: 2007Q4

REPORT INFORMATION
  Report Type: 
  Country: None (occurrence: None)
  Receive Date: 20071204
  Receipt Date: 20071122
  Transmission Date: 20080405
  Serious: Yes (Death, Other)
  Sender: FDA-Public Use
  Company Number: JP-BRISTOL-MYERS SQUIBB COMPANY-13999040

PATIENT
  Age: 40 Year
  Sex: Male

DRUGS (11)
  1. IFOSFAMIDE [Suspect]
     Indication: TESTICULAR NEOPLASM
  2. IFOSFAMIDE [Suspect]
     Indication: METASTASES TO LUNG
  3. IFOSFAMIDE [Suspect]
     Indication: METASTASES TO THE MEDIASTINUM
  4. ETOPOSIDE [Suspect]
     Indication: TESTICULAR NEOPLASM
  5. ETOPOSIDE [Suspect]
     Indication: METASTASES TO THE MEDIASTINUM
  6. ETOPOSIDE [Suspect]
     Indication: METASTASES TO LUNG
  7. CISPLATIN [Suspect]
  8. CARBOPLATIN [Suspect]
  9. PACLITAXEL [Suspect]
  10. IRINOTECAN HCL [Suspect]
  11. NEDAPLATIN [Suspect]

REACTIONS (2)
  - ACUTE MYELOID LEUKAEMIA [None]
  - DISSEMINATED INTRAVASCULAR COAGULATION [None]
